FAERS Safety Report 19295616 (Version 6)
Quarter: 2021Q3

REPORT INFORMATION
  Report Type: Report from Study
  Country: US (occurrence: US)
  Receive Date: 20210524
  Receipt Date: 20210706
  Transmission Date: 20211014
  Serious: Yes (Death, Other)
  Sender: FDA-Public Use
  Company Number: US-AGIOS-2105US02752

PATIENT

DRUGS (2)
  1. TIBSOVO [Suspect]
     Active Substance: IVOSIDENIB
     Indication: ACUTE MYELOID LEUKAEMIA
     Dosage: 500 MILLIGRAM (TWO 250MG TABLETS), QD
     Route: 048
     Dates: start: 20210505, end: 20210617
  2. VENCLEXTA [Concomitant]
     Active Substance: VENETOCLAX

REACTIONS (10)
  - Arrhythmia [Unknown]
  - Swelling [Unknown]
  - Haemoglobin decreased [Unknown]
  - Platelet count decreased [Recovering/Resolving]
  - Fungal infection [Unknown]
  - Diarrhoea [Unknown]
  - Death [Fatal]
  - Loss of consciousness [Not Recovered/Not Resolved]
  - Cardiac disorder [Not Recovered/Not Resolved]
  - Hypotension [Not Recovered/Not Resolved]
